FAERS Safety Report 20032082 (Version 1)
Quarter: 2021Q4

REPORT INFORMATION
  Report Type: Spontaneous
  Country: US (occurrence: US)
  Receive Date: 20211103
  Receipt Date: 20211103
  Transmission Date: 20220303
  Serious: No
  Sender: FDA-Public Use
  Company Number: US-ALLERGAN-2126368US

PATIENT
  Age: 45 Year
  Sex: Female
  Weight: 179.59 kg

DRUGS (3)
  1. VRAYLAR [Suspect]
     Active Substance: CARIPRAZINE
     Indication: Bipolar disorder
     Dosage: 1.5 MG, QD
     Route: 048
     Dates: start: 20210624
  2. LAMICTAL [Concomitant]
     Active Substance: LAMOTRIGINE
     Indication: Depressed mood
     Dosage: 150 MG, BID
     Route: 048
  3. ZOLOFT [Concomitant]
     Active Substance: SERTRALINE HYDROCHLORIDE
     Indication: Anxiety
     Dosage: 100 MG, BID
     Route: 048

REACTIONS (4)
  - Dysstasia [Unknown]
  - Pain [Unknown]
  - Back pain [Unknown]
  - Musculoskeletal stiffness [Unknown]

NARRATIVE: CASE EVENT DATE: 20210624
